FAERS Safety Report 6567504-7 (Version None)
Quarter: 2010Q1

REPORT INFORMATION
  Report Type: 
  Country: None (occurrence: None)
  Receive Date: 20100202
  Receipt Date: 20100112
  Transmission Date: 20100710
  Serious: No
  Sender: FDA-Public Use
  Company Number: US-JNJFOC-20091103681

PATIENT
  Sex: Female
  Weight: 107.5 kg

DRUGS (3)
  1. INVEGA SUSTENNA [Suspect]
     Indication: DRUG USE FOR UNKNOWN INDICATION
     Route: 030
     Dates: start: 20090923
  2. INVEGA SUSTENNA [Suspect]
     Route: 030
     Dates: start: 20090923
  3. INVEGA SUSTENNA [Suspect]
     Route: 030
     Dates: start: 20090923

REACTIONS (1)
  - INJECTION SITE NODULE [None]
